FAERS Safety Report 11880472 (Version 2)
Quarter: 2016Q1

REPORT INFORMATION
  Report Type: Spontaneous
  Country: US (occurrence: US)
  Receive Date: 20151230
  Receipt Date: 20160120
  Transmission Date: 20160526
  Serious: No
  Sender: FDA-Public Use
  Company Number: US-PFIZER INC-2015473952

PATIENT
  Age: 31 Year
  Sex: Male

DRUGS (26)
  1. REVATIO [Suspect]
     Active Substance: SILDENAFIL CITRATE
     Indication: PULMONARY ARTERIAL HYPERTENSION
     Dosage: 20 MG, 3X/DAY (90DAY SUPPLY)
     Route: 048
  2. PROVENTIL [Concomitant]
     Active Substance: ALBUTEROL
     Dosage: 0.5 ML, AS NEEDED ( (INHALE 0.5 ML SOLUTION AS DIRECTED EVERY 6 HOURS AS NEEDED)
  3. NOVOLOG [Concomitant]
     Active Substance: INSULIN ASPART
     Dosage: UNK UNK, 3X/DAY (TAKE WITH MEALS 3 TIMES DAILV, 20 UNITS ALUS A CORRECTION FACTOR OF 2 UNITS)
  4. ZAROXOLYN [Concomitant]
     Active Substance: METOLAZONE
     Dosage: 2.5 MG, 2X/DAY
     Route: 048
  5. MIRALAX [Concomitant]
     Active Substance: POLYETHYLENE GLYCOL 3350
     Dosage: 17 G, DAILY
     Route: 048
  6. VENTOLIN [Concomitant]
     Active Substance: ALBUTEROL SULFATE
     Dosage: 0.5 ML, AS NEEDED (INHALE 0.5 ML SOLUTION AS DIRECTED EVERY 6 HOURS AS NEEDED)
  7. FERROUS FUMARATE [Concomitant]
     Active Substance: FERROUS FUMARATE
     Dosage: 1 DF, DAILY
     Route: 048
  8. ADVAIR DISKUS [Concomitant]
     Active Substance: FLUTICASONE PROPIONATE\SALMETEROL XINAFOATE
     Dosage: 1 DF, 2X/DAY (INHALE 1 PUFF BY MOUTH EVERY 12 HRS)
     Route: 048
  9. VITAMIN B12 [Concomitant]
     Active Substance: CYANOCOBALAMIN
     Dosage: 500 UG, DAILY
     Route: 048
  10. WELLBUTRIN XL [Concomitant]
     Active Substance: BUPROPION HYDROCHLORIDE
     Dosage: 300 MG, DAILY (EVERY MORNING)
     Route: 048
  11. VICODIN [Concomitant]
     Active Substance: ACETAMINOPHEN\HYDROCODONE BITARTRATE
     Indication: PAIN
     Dosage: UNK UNK, AS NEEDED (HYDROCODONE BITARTRATE: 5 MG, PARACETAMOL: 325 MG/ TAKE 1-2 TABS BY MOUTH EVERY
  12. MULTIPLE VITAMINS [Concomitant]
     Active Substance: VITAMINS
     Dosage: 1 DF, DAILY
     Route: 048
  13. LASIX [Concomitant]
     Active Substance: FUROSEMIDE
     Dosage: 60 MG, DAILY (TAKE 30 MINUTES PRIOR TO METOLAZONE)
     Route: 048
  14. LANTUS SOLOSTAR [Concomitant]
     Active Substance: INSULIN GLARGINE
     Dosage: 75 IU, DAILY
  15. PRILOSEC [Concomitant]
     Active Substance: OMEPRAZOLE MAGNESIUM
     Dosage: 20 MG, DAILY
     Route: 048
  16. OXYGEN-AIR DELIVERY SYSTEMS [Concomitant]
     Dosage: USE 4-6 L AS DIRECTED DAILY
  17. SPIRIVA [Concomitant]
     Active Substance: TIOTROPIUM BROMIDE MONOHYDRATE
     Dosage: 18 UG, DAILY (INHALE THE CONTENTS OF 1 CAPSULE EVERY DAY)
  18. SODIUM CHLORIDE. [Concomitant]
     Active Substance: SODIUM CHLORIDE
     Dosage: 4 ML, 2X/DAY (INHALE 4 ML BY MOUTH TWICE DAILY)
  19. SINGULAIR [Concomitant]
     Active Substance: MONTELUKAST SODIUM
     Dosage: 10 MG, DAILY (AT BEDTIME DAILY
     Route: 048
  20. K-DUR [Concomitant]
     Active Substance: POTASSIUM CHLORIDE
     Dosage: 300 MEQ, DAILY (5 TABS IN AM, 5 TABS AT NOON, 5 LABS IN, EVENING)
  21. MIRAPEX [Concomitant]
     Active Substance: PRAMIPEXOLE DIHYDROCHLORIDE
     Dosage: 0.375 MG, 2X/DAY (1 TABLET IN THE AFTERNOON 2 TABLETS AT BEDTIME)
     Route: 048
  22. NORVASC [Concomitant]
     Active Substance: AMLODIPINE BESYLATE
     Dosage: 10 MG, DAILY
     Route: 048
  23. INSPRA [Concomitant]
     Active Substance: EPLERENONE
     Dosage: 25 MG, DAILY
  24. VENTOLIN HFA [Concomitant]
     Active Substance: ALBUTEROL SULFATE
     Indication: WHEEZING
     Dosage: 2 DF, AS NEEDED (LNHALE 2 PUFFS BY MOUTH EVERY 4 HOURS AS NEEDED FOR WHEEZING)
     Route: 048
  25. FERROUS SULFATE [Concomitant]
     Active Substance: FERROUS SULFATE\FERROUS SULFATE, DRIED
     Dosage: 325 MG, DAILY
     Route: 048
  26. NORCO [Concomitant]
     Active Substance: ACETAMINOPHEN\HYDROCODONE BITARTRATE
     Indication: PAIN
     Dosage: UNK (HYDROCODONE BITARTRATE: 5MG, PARACETAMOL: 325MG)/(TAKE 1-2 TABS BY MOUTH EVERY 4 HOURS)
     Route: 048

REACTIONS (2)
  - Dyspnoea [Unknown]
  - Nasopharyngitis [Unknown]
